FAERS Safety Report 15000646 (Version 3)
Quarter: 2018Q3

REPORT INFORMATION
  Report Type: Spontaneous
  Country: NL (occurrence: NL)
  Receive Date: 20180612
  Receipt Date: 20180925
  Transmission Date: 20181010
  Serious: Yes (Life-Threatening, Hospitalization, Other)
  Sender: FDA-Public Use
  Company Number: NL-MYLANLABS-M-EU-2017080002

PATIENT
  Age: 71 Year
  Sex: Male

DRUGS (3)
  1. DIPYRIDAMOLE. [Suspect]
     Active Substance: DIPYRIDAMOLE
     Indication: ANTICOAGULANT THERAPY
     Dosage: UNK
  2. DIPYRIDAMOLE. [Suspect]
     Active Substance: DIPYRIDAMOLE
     Indication: EMBOLISM
  3. ACETYLSALICYLIC ACID [Suspect]
     Active Substance: ASPIRIN
     Indication: ANTICOAGULANT THERAPY
     Dosage: 80 MG, UNK
     Route: 065

REACTIONS (7)
  - Peritoneal haematoma [Recovered/Resolved]
  - Abdominal pain [Unknown]
  - Shock [Recovered/Resolved]
  - Splenic injury [Recovered/Resolved]
  - Splenic rupture [Unknown]
  - Intra-abdominal haemorrhage [Recovered/Resolved]
  - Peritonitis [Recovered/Resolved]
